FAERS Safety Report 17782940 (Version 1)
Quarter: 2020Q2

REPORT INFORMATION
  Report Type: Spontaneous
  Country: US (occurrence: US)
  Receive Date: 20200514
  Receipt Date: 20200514
  Transmission Date: 20200714
  Serious: Yes (Hospitalization)
  Sender: FDA-Public Use
  Company Number: None

PATIENT
  Sex: Female
  Weight: 37.7 kg

DRUGS (4)
  1. MERCAOTOPURINE (755) [Suspect]
     Active Substance: MERCAPTOPURINE
     Dates: end: 20200506
  2. VINCRISTINE SULFATE. [Suspect]
     Active Substance: VINCRISTINE SULFATE
     Dates: end: 20200428
  3. PREDNISONE. [Suspect]
     Active Substance: PREDNISONE
     Dates: end: 20200503
  4. METHOTREXATE. [Suspect]
     Active Substance: METHOTREXATE
     Dates: end: 20200505

REACTIONS (12)
  - Colitis [None]
  - Diarrhoea [None]
  - Altered state of consciousness [None]
  - Pyrexia [None]
  - Tachycardia [None]
  - Tachypnoea [None]
  - Hyperbilirubinaemia [None]
  - Respiratory failure [None]
  - Vomiting [None]
  - Nausea [None]
  - Hypotension [None]
  - Septic shock [None]

NARRATIVE: CASE EVENT DATE: 20200506
